FAERS Safety Report 7522756-1 (Version None)
Quarter: 2011Q2

REPORT INFORMATION
  Report Type: 
  Country: None (occurrence: None)
  Receive Date: 20110603
  Receipt Date: 20110525
  Transmission Date: 20111010
  Serious: Yes (Hospitalization)
  Sender: FDA-Public Use
  Company Number: NZ-ACTELION-A-CH2011-46335

PATIENT
  Sex: Female
  Weight: 80 kg

DRUGS (14)
  1. ATORVASTATIN [Concomitant]
  2. PREDNISOLONE [Concomitant]
  3. WARFARIN SODIUM [Concomitant]
  4. VENTAVIS [Suspect]
     Dosage: UNK
     Dates: start: 20110407
  5. SILDENAFIL CITRATE [Concomitant]
  6. TRACLEER [Suspect]
     Dosage: 62.5 MG, QD
     Route: 048
     Dates: start: 20100923, end: 20101007
  7. VENTAVIS [Suspect]
     Indication: PULMONARY ARTERIAL HYPERTENSION
     Dosage: UNK , UNK
     Dates: start: 20110405, end: 20110405
  8. TRACLEER [Suspect]
     Indication: PULMONARY ARTERIAL HYPERTENSION
     Dosage: 62.5 MG, BID
     Route: 048
     Dates: start: 20101008
  9. CANDESARTAN CILEXETIL [Concomitant]
  10. TRACLEER [Suspect]
     Dosage: 93.75 MG, BID
     Route: 048
     Dates: end: 20101222
  11. VENTAVIS [Suspect]
     Dosage: UNK
     Dates: start: 20110406, end: 20110406
  12. LANSOPRAZOLE [Concomitant]
  13. FUROSEMIDE [Concomitant]
  14. CHOLECALCIFEROL [Concomitant]

REACTIONS (12)
  - PRODUCTIVE COUGH [None]
  - LIVER FUNCTION TEST ABNORMAL [None]
  - ALANINE AMINOTRANSFERASE INCREASED [None]
  - HYPERURICAEMIA [None]
  - HEADACHE [None]
  - OEDEMA PERIPHERAL [None]
  - PAIN [None]
  - GAMMA-GLUTAMYLTRANSFERASE INCREASED [None]
  - DYSPHONIA [None]
  - ASPARTATE AMINOTRANSFERASE INCREASED [None]
  - SYNOVIAL FLUID CRYSTAL [None]
  - DYSPNOEA [None]
